FAERS Safety Report 7383061-X (Version None)
Quarter: 2011Q1

REPORT INFORMATION
  Report Type: 
  Country: None (occurrence: None)
  Receive Date: 20110330
  Receipt Date: 20110325
  Transmission Date: 20110831
  Serious: No
  Sender: FDA-Public Use
  Company Number: US-PFIZER INC-2011067436

PATIENT
  Sex: Female

DRUGS (4)
  1. SINGULAIR [Concomitant]
     Dosage: 10 MG, UNK
     Route: 048
  2. NASONEX [Concomitant]
     Dosage: UNK, 2X/DAY
  3. ZYVOX [Suspect]
     Indication: SINUSITIS
     Dosage: 600 MG, 2X/DAY
     Route: 048
     Dates: start: 20110323
  4. ADVAIR DISKUS 100/50 [Concomitant]
     Dosage: UNK, 2X/DAY

REACTIONS (1)
  - NAUSEA [None]
